FAERS Safety Report 15233932 (Version 2)
Quarter: 2018Q3

REPORT INFORMATION
  Report Type: Spontaneous
  Country: MX (occurrence: MX)
  Receive Date: 20180802
  Receipt Date: 20180907
  Transmission Date: 20181010
  Serious: Yes (Other)
  Sender: FDA-Public Use
  Company Number: PHHY2018MX062382

PATIENT
  Age: 40 Year
  Sex: Male
  Weight: 72 kg

DRUGS (2)
  1. GILENYA [Suspect]
     Active Substance: FINGOLIMOD HYDROCHLORIDE
     Dosage: EVERY THIRD DAY
     Route: 048
  2. GILENYA [Suspect]
     Active Substance: FINGOLIMOD HYDROCHLORIDE
     Indication: MULTIPLE SCLEROSIS
     Dosage: 0.5 MG, QD
     Route: 048
     Dates: start: 201705

REACTIONS (11)
  - Choluria [Recovered/Resolved]
  - Ocular icterus [Recovered/Resolved]
  - Abdominal pain upper [Recovered/Resolved]
  - Hepatotoxicity [Unknown]
  - Cholestasis [Unknown]
  - Inappropriate schedule of drug administration [Unknown]
  - Deficiency of bile secretion [Recovered/Resolved]
  - Chromaturia [Unknown]
  - Faeces pale [Unknown]
  - Pain [Unknown]
  - Liver function test abnormal [Unknown]

NARRATIVE: CASE EVENT DATE: 20180515
